FAERS Safety Report 6730807-7 (Version None)
Quarter: 2010Q2

REPORT INFORMATION
  Report Type: 
  Country: None (occurrence: None)
  Receive Date: 20100518
  Receipt Date: 20100510
  Transmission Date: 20101027
  Serious: Yes (Hospitalization)
  Sender: FDA-Public Use
  Company Number: JP-BRISTOL-MYERS SQUIBB COMPANY-15107238

PATIENT
  Age: 11 Year
  Sex: Female
  Weight: 27 kg

DRUGS (1)
  1. AMOXICILLIN [Suspect]
     Indication: TONSILLITIS STREPTOCOCCAL
     Dates: start: 20050201, end: 20050301

REACTIONS (1)
  - ENTEROCOLITIS HAEMORRHAGIC [None]
